FAERS Safety Report 8152432-6 (Version None)
Quarter: 2012Q1

REPORT INFORMATION
  Report Type: 
  Country: None (occurrence: None)
  Receive Date: 20120221
  Receipt Date: 20120209
  Transmission Date: 20120608
  Serious: Yes (Hospitalization, Other)
  Sender: FDA-Public Use
  Company Number: CA-JNJFOC-20120205734

PATIENT
  Sex: Female
  Weight: 88.6 kg

DRUGS (7)
  1. REMICADE [Suspect]
     Dosage: 17TH DOSE
     Route: 042
     Dates: start: 20111215
  2. TERBINAFINE HCL [Suspect]
     Indication: FUNGAL INFECTION
     Route: 065
     Dates: end: 20111201
  3. CLOTRIMADERM [Concomitant]
     Route: 065
  4. LAMSIL [Concomitant]
     Indication: FUNGAL INFECTION
     Route: 065
  5. REMICADE [Suspect]
     Indication: CROHN'S DISEASE
     Route: 042
     Dates: start: 20090824
  6. CYCLOBENZAPRINE [Concomitant]
     Route: 065
  7. LORAZEPAM [Concomitant]
     Route: 065

REACTIONS (4)
  - SYNCOPE [None]
  - INFECTION [None]
  - DIZZINESS [None]
  - EAR INFECTION [None]
